FAERS Safety Report 7759065-1 (Version None)
Quarter: 2011Q3

REPORT INFORMATION
  Report Type: 
  Country: None (occurrence: None)
  Receive Date: 20110919
  Receipt Date: 20110907
  Transmission Date: 20111222
  Serious: Yes (Death, Hospitalization)
  Sender: FDA-Public Use
  Company Number: JP-SANOFI-AVENTIS-2011SA058738

PATIENT
  Age: 75 Year
  Sex: Male

DRUGS (3)
  1. CISPLATIN [Suspect]
     Route: 065
  2. GIMERACIL/OTERACIL POTASSIUM/TEGAFUR [Suspect]
     Route: 065
  3. DOCETAXEL [Suspect]
     Dosage: INFUSION
     Route: 065

REACTIONS (15)
  - DERMATOSIS [None]
  - DISSOCIATIVE FUGUE [None]
  - DEMENTIA ALZHEIMER'S TYPE [None]
  - DISORIENTATION [None]
  - ABNORMAL BEHAVIOUR [None]
  - COGNITIVE DISORDER [None]
  - HALLUCINATION, VISUAL [None]
  - INSOMNIA [None]
  - INTERSTITIAL LUNG DISEASE [None]
  - DEMENTIA [None]
  - MEMORY IMPAIRMENT [None]
  - DYSPHORIA [None]
  - DISEASE PROGRESSION [None]
  - CEREBRAL ATROPHY [None]
  - MENTAL IMPAIRMENT [None]
